FAERS Safety Report 9817546 (Version 2)
Quarter: 2016Q2

REPORT INFORMATION
  Report Type: Report from Study
  Country: US (occurrence: US)
  Receive Date: 20140115
  Receipt Date: 20160621
  Transmission Date: 20160815
  Serious: Yes (Death)
  Sender: FDA-Public Use
  Company Number: US-ROCHE-1333806

PATIENT
  Sex: Male

DRUGS (3)
  1. TNKASE [Suspect]
     Active Substance: TENECTEPLASE
     Indication: DIABETIC KETOACIDOSIS
  2. TNKASE [Suspect]
     Active Substance: TENECTEPLASE
     Indication: ESSENTIAL HYPERTENSION
  3. TNKASE [Suspect]
     Active Substance: TENECTEPLASE
     Indication: ACUTE MYOCARDIAL INFARCTION
     Route: 065
     Dates: start: 20131214

REACTIONS (1)
  - Death [Fatal]
